FAERS Safety Report 8849391 (Version 2)
Quarter: 2012Q4

REPORT INFORMATION
  Report Type: 
  Country: US (occurrence: US)
  Receive Date: 20121017
  Receipt Date: 20121031
  Transmission Date: 20130627
  Serious: Yes (Other)
  Sender: FDA-Public Use
  Company Number: US-ASTRAZENECA-2012SE77578

PATIENT
  Age: 62 Year
  Sex: Female
  Weight: 62.6 kg

DRUGS (5)
  1. CRESTOR [Suspect]
     Indication: BLOOD CHOLESTEROL
     Route: 048
     Dates: start: 2009
  2. LOPRESSOR [Concomitant]
     Indication: BLOOD PRESSURE
     Route: 048
     Dates: start: 2009
  3. LOPRESSOR [Concomitant]
     Indication: BLOOD PRESSURE
     Route: 048
     Dates: start: 2009
  4. XANAX [Concomitant]
     Indication: PREOPERATIVE CARE
     Route: 048
  5. LORTAB [Concomitant]
     Indication: PAIN
     Route: 048
     Dates: start: 2012

REACTIONS (14)
  - Cartilage injury [Unknown]
  - Arthropathy [Unknown]
  - Muscular weakness [Unknown]
  - Accident [Unknown]
  - Muscle haemorrhage [Unknown]
  - Lymphoma [Unknown]
  - Nerve injury [Unknown]
  - Neoplasm malignant [Unknown]
  - Muscle disorder [Unknown]
  - Musculoskeletal pain [Unknown]
  - Contusion [Unknown]
  - Grip strength decreased [Unknown]
  - Depression [Unknown]
  - Stress [Unknown]
